FAERS Safety Report 21989825 (Version 2)
Quarter: 2023Q4

REPORT INFORMATION
  Report Type: Spontaneous
  Country: US (occurrence: US)
  Receive Date: 20230214
  Receipt Date: 20231227
  Transmission Date: 20240109
  Serious: Yes (Other)
  Sender: FDA-Public Use
  Company Number: US-PFIZER INC-202300066811

PATIENT
  Sex: Female

DRUGS (1)
  1. PREMARIN [Suspect]
     Active Substance: ESTROGENS, CONJUGATED
     Dosage: UNK

REACTIONS (5)
  - Hysterectomy [Unknown]
  - Precancerous condition [Unknown]
  - Endometriosis [Unknown]
  - Pain [Not Recovered/Not Resolved]
  - Menopause [Unknown]
